FAERS Safety Report 12718929 (Version 1)
Quarter: 2016Q3

REPORT INFORMATION
  Report Type: Other
  Country: US (occurrence: US)
  Receive Date: 20160906
  Receipt Date: 20160906
  Transmission Date: 20161109
  Serious: No
  Sender: FDA-Public Use
  Company Number: US-COL_20365_2015

PATIENT
  Sex: Female

DRUGS (1)
  1. COLGATE TOTAL WHITENING [Suspect]
     Active Substance: SODIUM FLUORIDE\TRICLOSAN
     Indication: PRODUCT USED FOR UNKNOWN INDICATION
     Dosage: NI/ USED ONE TIME/
     Route: 048
     Dates: start: 20150726, end: 20150726

REACTIONS (5)
  - Gingival swelling [Recovered/Resolved]
  - Product quality issue [Unknown]
  - Gingival pain [Unknown]
  - Tooth disorder [Not Recovered/Not Resolved]
  - Oral discomfort [Recovered/Resolved]

NARRATIVE: CASE EVENT DATE: 201507
